FAERS Safety Report 14631883 (Version 2)
Quarter: 2018Q2

REPORT INFORMATION
  Report Type: Spontaneous
  Country: JP (occurrence: JP)
  Receive Date: 20180313
  Receipt Date: 20180404
  Transmission Date: 20180711
  Serious: Yes (Hospitalization, Disabling)
  Sender: FDA-Public Use
  Company Number: JP-BAYER-2018-036483

PATIENT
  Age: 70 Year
  Sex: Male
  Weight: 50 kg

DRUGS (8)
  1. NEXIUM [Concomitant]
     Active Substance: ESOMEPRAZOLE MAGNESIUM
     Dosage: 20 MG, AFTER BREAKFAST
     Route: 048
  2. STIVARGA [Suspect]
     Active Substance: REGORAFENIB
     Indication: HEPATOCELLULAR CARCINOMA
     Dosage: 80 MG, QOD
     Route: 048
     Dates: start: 20180302
  3. LAGNOS [Concomitant]
  4. STIVARGA [Suspect]
     Active Substance: REGORAFENIB
     Indication: HEPATOCELLULAR CARCINOMA
     Dosage: 40 MG, QD
     Route: 048
     Dates: start: 20180215, end: 20180221
  5. STIVARGA [Suspect]
     Active Substance: REGORAFENIB
     Indication: HEPATOCELLULAR CARCINOMA
     Dosage: 40 MG, QOD
     Route: 048
     Dates: start: 20180301
  6. MIYA-BM [Concomitant]
     Active Substance: CLOSTRIDIUM BUTYRICUM SPORES STRAIN M-55
     Dosage: AFTER EACH MEAL
     Route: 048
  7. BARACLUDE [Concomitant]
     Active Substance: ENTECAVIR
     Dosage: 2 HOURS AFTER LUNCH
     Route: 048
  8. REBAMIPIDE [Concomitant]
     Active Substance: REBAMIPIDE
     Dosage: 1 DF, TID
     Route: 048

REACTIONS (4)
  - Cognitive disorder [Recovered/Resolved]
  - Hepatic encephalopathy [Recovered/Resolved]
  - Disorientation [Recovered/Resolved]
  - Abnormal behaviour [Recovered/Resolved]

NARRATIVE: CASE EVENT DATE: 20180219
